FAERS Safety Report 20779834 (Version 16)
Quarter: 2023Q1

REPORT INFORMATION
  Report Type: Spontaneous
  Country: US (occurrence: US)
  Receive Date: 20220503
  Receipt Date: 20230307
  Transmission Date: 20230417
  Serious: Yes (Other)
  Sender: FDA-Public Use
  Company Number: US-PFIZER INC-202101863787

PATIENT
  Age: 83 Year
  Sex: Female
  Weight: 62.6 kg

DRUGS (3)
  1. TOVIAZ [Suspect]
     Active Substance: FESOTERODINE FUMARATE
     Indication: Urinary incontinence
     Dosage: 4 MG
  2. TOVIAZ [Suspect]
     Active Substance: FESOTERODINE FUMARATE
     Dosage: UNK, DAILY(1/4 TABLET)
     Route: 048
  3. TOVIAZ [Suspect]
     Active Substance: FESOTERODINE FUMARATE
     Dosage: 8 MG, 1X/DAY (OBLONG BLUE TABLET)

REACTIONS (19)
  - Urinary retention [Unknown]
  - Blood pressure increased [Unknown]
  - Therapeutic product effect incomplete [Unknown]
  - Cough [Unknown]
  - Rotator cuff syndrome [Unknown]
  - Headache [Unknown]
  - Hypoaesthesia [Unknown]
  - Fatigue [Unknown]
  - Dysphonia [Unknown]
  - Cardiac disorder [Unknown]
  - Weight decreased [Unknown]
  - Stress [Unknown]
  - Arthritis [Unknown]
  - Product dose omission issue [Unknown]
  - Wrong technique in product usage process [Unknown]
  - Product prescribing error [Unknown]
  - Intentional product misuse [Unknown]
  - Product packaging difficult to open [Unknown]
  - Product storage error [Unknown]
